FAERS Safety Report 13621057 (Version 1)
Quarter: 2017Q2

REPORT INFORMATION
  Report Type: Spontaneous
  Country: US (occurrence: US)
  Receive Date: 20170607
  Receipt Date: 20170607
  Transmission Date: 20170830
  Serious: Yes (Other)
  Sender: FDA-Public Use
  Company Number: US-ALVOGEN-2017-ALVOGEN-092281

PATIENT
  Age: 62 Year
  Sex: Female
  Weight: 89.81 kg

DRUGS (1)
  1. FLECAINIDE [Suspect]
     Active Substance: FLECAINIDE
     Indication: PRODUCT USED FOR UNKNOWN INDICATION
     Dates: start: 201307

REACTIONS (1)
  - Sinus node dysfunction [Unknown]

NARRATIVE: CASE EVENT DATE: 20130823
